FAERS Safety Report 11493260 (Version 1)
Quarter: 2015Q3

REPORT INFORMATION
  Report Type: Spontaneous
  Country: US (occurrence: US)
  Receive Date: 20150911
  Receipt Date: 20150911
  Transmission Date: 20151125
  Serious: No
  Sender: FDA-Public Use
  Company Number: US-ROCHE-1015469

PATIENT
  Age: 52 Year
  Sex: Male

DRUGS (3)
  1. PEGASYS [Suspect]
     Active Substance: PEGINTERFERON ALFA-2A
     Indication: CHRONIC HEPATITIS C
     Route: 058
     Dates: start: 20111016
  2. PEGASYS [Suspect]
     Active Substance: PEGINTERFERON ALFA-2A
     Route: 065
  3. COPEGUS [Suspect]
     Active Substance: RIBAVIRIN
     Indication: CHRONIC HEPATITIS C
     Route: 048
     Dates: start: 20111016

REACTIONS (7)
  - Nausea [Unknown]
  - Rash erythematous [Recovered/Resolved]
  - Urticaria [Not Recovered/Not Resolved]
  - Pruritus [Unknown]
  - Herpes zoster [Unknown]
  - Irritability [Unknown]
  - Abdominal pain [Unknown]

NARRATIVE: CASE EVENT DATE: 20111105
